FAERS Safety Report 4609936-X (Version None)
Quarter: 2005Q1

REPORT INFORMATION
  Report Type: 
  Country: None (occurrence: None)
  Receive Date: 20050314
  Receipt Date: 20050314
  Transmission Date: 20050727
  Serious: Yes (Hospitalization)
  Sender: FDA-Public Use
  Company Number: None

PATIENT
  Age: 76 Year
  Sex: Male

DRUGS (9)
  1. NIFEDIPINE [Suspect]
     Indication: HYPERTENSION
     Dosage: 90 MG QD
     Dates: start: 20040630
  2. MAXZIDE [Suspect]
     Indication: HYPERTENSION
     Dosage: 1 TAB DAILY
     Dates: start: 20040701
  3. IRBESARTAN [Suspect]
     Indication: HYPERTENSION
     Dosage: 300 MG QD
     Dates: start: 20040701
  4. BUSPIRONE [Concomitant]
  5. METHOCARBAMOL [Concomitant]
  6. CITALOPRAM HYDROBROMIDE [Concomitant]
  7. LORATADINE [Concomitant]
  8. SIMVASTATIN [Concomitant]
  9. ROSIGLITAZONE [Concomitant]

REACTIONS (1)
  - DIZZINESS [None]
